FAERS Safety Report 17681852 (Version 2)
Quarter: 2025Q3

REPORT INFORMATION
  Report Type: Report from Study
  Country: EU (occurrence: EU)
  Receive Date: 20200417
  Receipt Date: 20250705
  Transmission Date: 20251021
  Serious: Yes (Other)
  Sender: AUROBINDO
  Company Number: EU-ROCHE-2573985

PATIENT
  Sex: Male

DRUGS (2)
  1. RIBAVIRIN [Suspect]
     Active Substance: RIBAVIRIN
     Indication: Glomerulonephropathy
     Dosage: 200 MILLIGRAM, EVERY WEEK
     Route: 065
  2. RIBAVIRIN [Suspect]
     Active Substance: RIBAVIRIN
     Indication: Hepatitis C

REACTIONS (4)
  - Haemolytic anaemia [Unknown]
  - Fatigue [Unknown]
  - Intentional product use issue [Unknown]
  - Off label use [Unknown]
